FAERS Safety Report 10241839 (Version 1)
Quarter: 2014Q2

REPORT INFORMATION
  Report Type: Spontaneous
  Country: US (occurrence: US)
  Receive Date: 20140617
  Receipt Date: 20140617
  Transmission Date: 20141212
  Serious: Yes (Other)
  Sender: FDA-Public Use
  Company Number: US-GLAXOSMITHKLINE-A1073951A

PATIENT
  Age: 21 Year
  Sex: Female

DRUGS (2)
  1. LAMICTAL [Suspect]
     Indication: CONVULSION
     Route: 065
     Dates: start: 20140222
  2. UNSPECIFIED MEDICATIONS [Suspect]
     Indication: CONVULSION
     Route: 065

REACTIONS (3)
  - Convulsion [Unknown]
  - Drug dose omission [Unknown]
  - Adverse drug reaction [Unknown]
